FAERS Safety Report 4379312-6 (Version None)
Quarter: 2004Q2

REPORT INFORMATION
  Report Type: 
  Country: None (occurrence: None)
  Receive Date: 20040617
  Receipt Date: 20040609
  Transmission Date: 20050107
  Serious: Yes (Other)
  Sender: FDA-Public Use
  Company Number: 200411998JP

PATIENT
  Age: 33 Year
  Sex: Male

DRUGS (5)
  1. KETEK [Suspect]
     Indication: COUGH
     Route: 048
     Dates: start: 20040428, end: 20040502
  2. KERLONG [Concomitant]
  3. NORVASC [Concomitant]
  4. FLUITRAN [Concomitant]
     Route: 048
     Dates: start: 20031201
  5. OZEX [Concomitant]
     Route: 048
     Dates: start: 20040512, end: 20040501

REACTIONS (1)
  - RENAL IMPAIRMENT [None]
